FAERS Safety Report 5226916-4 (Version None)
Quarter: 2007Q1

REPORT INFORMATION
  Report Type: 
  Country: None (occurrence: None)
  Receive Date: 20070202
  Receipt Date: 20070124
  Transmission Date: 20070707
  Serious: Yes (Hospitalization)
  Sender: FDA-Public Use
  Company Number: US-SANOFI-SYNTHELABO-A03200700722

PATIENT
  Sex: Male
  Weight: 54.42 kg

DRUGS (5)
  1. ASPIRIN [Concomitant]
     Dosage: UNK
     Route: 048
  2. METOPROLOL TARTRATE [Concomitant]
     Route: 048
     Dates: start: 20051101
  3. CRESTOR [Concomitant]
     Route: 048
     Dates: start: 20051101, end: 20060301
  4. ALTACE [Concomitant]
     Route: 048
     Dates: start: 20051101, end: 20060301
  5. PLAVIX [Suspect]
     Indication: STENT PLACEMENT
     Route: 048
     Dates: start: 20051110, end: 20060101

REACTIONS (4)
  - DYSPEPSIA [None]
  - GASTRIC CANCER [None]
  - HAEMORRHAGE [None]
  - WEIGHT DECREASED [None]
